FAERS Safety Report 16206652 (Version 2)
Quarter: 2019Q3

REPORT INFORMATION
  Report Type: Report from Study
  Country: GB (occurrence: GB)
  Receive Date: 20190417
  Receipt Date: 20190723
  Transmission Date: 20191004
  Serious: Yes (Other)
  Sender: FDA-Public Use
  Company Number: PHHY2019GB026745

PATIENT
  Sex: Male

DRUGS (1)
  1. ERELZI [Suspect]
     Active Substance: ETANERCEPT-SZZS
     Indication: ANKYLOSING SPONDYLITIS
     Dosage: 50 MG, Q2W, (PRE-FILLED PEN)
     Route: 058
     Dates: start: 20180628

REACTIONS (3)
  - Malaise [Recovered/Resolved]
  - Ill-defined disorder [Unknown]
  - General physical health deterioration [Unknown]
